FAERS Safety Report 6671604-0 (Version None)
Quarter: 2010Q2

REPORT INFORMATION
  Report Type: 
  Country: None (occurrence: None)
  Receive Date: 20100407
  Receipt Date: 20100312
  Transmission Date: 20101027
  Serious: No
  Sender: FDA-Public Use
  Company Number: US-JNJFOC-20100304550

PATIENT
  Sex: Female
  Weight: 97.98 kg

DRUGS (12)
  1. INVEGA [Suspect]
     Indication: SCHIZOPHRENIA
     Route: 048
  2. NEXIUM [Concomitant]
     Route: 048
  3. EFFEXOR [Concomitant]
     Route: 048
  4. LOXAPINE [Concomitant]
     Indication: DELUSION
     Route: 048
  5. COGENTIN [Concomitant]
     Route: 048
  6. LOVASTATIN [Concomitant]
     Indication: BLOOD CHOLESTEROL ABNORMAL
     Route: 048
  7. METFORMIN [Concomitant]
     Indication: DIABETES MELLITUS
     Route: 048
  8. INDERAL [Concomitant]
     Route: 048
  9. NEURONTIN [Concomitant]
     Indication: NERVE INJURY
     Route: 048
  10. HYDROXYZINE [Concomitant]
     Route: 048
  11. LISINOPRIL [Concomitant]
     Indication: BLOOD PRESSURE ABNORMAL
     Route: 048
  12. LANTUS [Concomitant]
     Indication: DIABETES MELLITUS
     Route: 058

REACTIONS (1)
  - DELUSION [None]
